FAERS Safety Report 9252134 (Version 2)
Quarter: 2013Q2

REPORT INFORMATION
  Report Type: Spontaneous
  Country: VE (occurrence: VE)
  Receive Date: 20130424
  Receipt Date: 20130523
  Transmission Date: 20140414
  Serious: Yes (Other)
  Sender: FDA-Public Use
  Company Number: VE-PFIZER INC-2013126941

PATIENT
  Age: 58 Year
  Sex: Male

DRUGS (4)
  1. LIPITOR [Suspect]
     Indication: MYOCARDIAL INFARCTION
     Dosage: 40 MG, ONCE DAILY
     Route: 048
     Dates: start: 201210
  2. ACETYLSALICYLIC ACID [Interacting]
  3. PLAVIX [Interacting]
  4. DILATREND [Concomitant]
     Indication: HYPERTENSION
     Dosage: 6.25 MG, 1X/DAY
     Route: 048
     Dates: start: 201210

REACTIONS (4)
  - Drug interaction [Not Recovered/Not Resolved]
  - Eye disorder [Not Recovered/Not Resolved]
  - Blindness [Not Recovered/Not Resolved]
  - Retinal haemorrhage [Recovered/Resolved]
